FAERS Safety Report 6082607-1 (Version None)
Quarter: 2009Q1

REPORT INFORMATION
  Report Type: 
  Country: None (occurrence: None)
  Receive Date: 20090218
  Receipt Date: 20090206
  Transmission Date: 20090719
  Serious: Yes (Other)
  Sender: FDA-Public Use
  Company Number: GB-ELI_LILLY_AND_COMPANY-GB200902001722

PATIENT
  Sex: Male

DRUGS (3)
  1. CIALIS [Suspect]
     Dosage: UNK, UNKNOWN
     Route: 065
  2. BISOPROLOL [Concomitant]
     Dosage: UNK, UNKNOWN
     Route: 065
  3. AMIODARONE [Concomitant]
     Dosage: UNK, UNKNOWN
     Route: 065

REACTIONS (2)
  - CARDIAC FIBRILLATION [None]
  - CARDIOPULMONARY BYPASS [None]
